FAERS Safety Report 4581385-2 (Version None)
Quarter: 2005Q1

REPORT INFORMATION
  Report Type: 
  Country: None (occurrence: None)
  Receive Date: 20050214
  Receipt Date: 20041008
  Transmission Date: 20050727
  Serious: Yes (Life-Threatening, Other)
  Sender: FDA-Public Use
  Company Number: US-GLAXOSMITHKLINE-A0529452A

PATIENT
  Age: 33 Year
  Sex: Male

DRUGS (3)
  1. LAMICTAL [Suspect]
     Dosage: 25MG PER DAY
     Route: 048
     Dates: start: 20040923, end: 20040929
  2. DEPAKOTE [Concomitant]
  3. CIPROFLOXACIN [Concomitant]

REACTIONS (2)
  - ERYTHEMA MULTIFORME [None]
  - RASH [None]
